FAERS Safety Report 7674418-8 (Version None)
Quarter: 2011Q3

REPORT INFORMATION
  Report Type: 
  Country: None (occurrence: None)
  Receive Date: 20110810
  Receipt Date: 20110805
  Transmission Date: 20111222
  Serious: Yes (Hospitalization)
  Sender: FDA-Public Use
  Company Number: GB-PFIZER INC-2011162865

PATIENT
  Age: 78 Year
  Sex: Male

DRUGS (10)
  1. BISOPROLOL [Concomitant]
     Indication: MYOCARDIAL ISCHAEMIA
     Dosage: 2.5 MG, 1X/DAY
     Route: 048
  2. WARFARIN [Concomitant]
     Indication: ATRIAL FIBRILLATION
     Dosage: UNK
     Route: 048
  3. CLARITHROMYCIN [Suspect]
     Indication: OSTEOMYELITIS
  4. FUROSEMIDE [Concomitant]
     Indication: CARDIAC FAILURE CONGESTIVE
     Dosage: 40 MG, 1X/DAY
     Route: 048
  5. CLARITHROMYCIN [Suspect]
     Indication: ISCHAEMIC ULCER
     Dosage: 500 MG, 2X/DAY
     Route: 048
     Dates: start: 20090801, end: 20110606
  6. FUSIDATE SODIUM [Suspect]
     Indication: OSTEOMYELITIS
     Dosage: 500 MG, 3X/DAY
     Route: 048
     Dates: start: 20090901, end: 20110605
  7. LACTULOSE [Concomitant]
     Dosage: 15 ML, 2X/DAY
     Route: 048
  8. NOVOMIX [Concomitant]
     Dosage: 34 IU, 1X/DAY
     Route: 058
  9. ATORVASTATIN CALCIUM [Suspect]
     Indication: MYOCARDIAL ISCHAEMIA
     Dosage: 10 MG, 1X/DAY
     Route: 048
     Dates: start: 20090101, end: 20110606
  10. FUSIDATE SODIUM [Suspect]
     Indication: ISCHAEMIC ULCER

REACTIONS (4)
  - RHABDOMYOLYSIS [None]
  - URINARY RETENTION [None]
  - RENAL FAILURE ACUTE [None]
  - MUSCULAR WEAKNESS [None]
